FAERS Safety Report 7454298-6 (Version None)
Quarter: 2011Q2

REPORT INFORMATION
  Report Type: 
  Country: None (occurrence: None)
  Receive Date: 20110503
  Receipt Date: 20110421
  Transmission Date: 20111010
  Serious: Yes (Hospitalization, Other)
  Sender: FDA-Public Use
  Company Number: US-US-EMD SERONO, INC.-7047166

PATIENT
  Sex: Female
  Weight: 47 kg

DRUGS (5)
  1. DILAUDID [Concomitant]
     Indication: BACK PAIN
  2. DESIPRAMIDE HCL [Concomitant]
  3. REBIF [Suspect]
     Indication: PRODUCT USED FOR UNKNOWN INDICATION
     Route: 058
     Dates: start: 20040229
  4. NORVASC [Concomitant]
     Dates: start: 20110101
  5. CLONAZEPAM [Concomitant]

REACTIONS (5)
  - FATIGUE [None]
  - CHRONIC OBSTRUCTIVE PULMONARY DISEASE [None]
  - NASOPHARYNGITIS [None]
  - MUSCULAR WEAKNESS [None]
  - SKIN BACTERIAL INFECTION [None]
